FAERS Safety Report 9726604 (Version 3)
Quarter: 2014Q1

REPORT INFORMATION
  Report Type: Spontaneous
  Country: JP (occurrence: JP)
  Receive Date: 20131203
  Receipt Date: 20140225
  Transmission Date: 20141002
  Serious: Yes (Hospitalization)
  Sender: FDA-Public Use
  Company Number: JP-GLAXOSMITHKLINE-B0949241A

PATIENT
  Age: 49 Year
  Sex: Female

DRUGS (5)
  1. LAMICTAL [Suspect]
     Indication: BIPOLAR I DISORDER
     Dosage: 25MG PER DAY
     Route: 048
     Dates: start: 20121026, end: 20121119
  2. PAROXETINE [Concomitant]
     Indication: BIPOLAR I DISORDER
     Route: 048
     Dates: start: 201104, end: 20121122
  3. ARIPIPRAZOLE [Concomitant]
     Indication: BIPOLAR I DISORDER
     Route: 048
     Dates: start: 20110618, end: 20121122
  4. ETIZOLAM [Concomitant]
     Indication: BIPOLAR I DISORDER
     Route: 048
     Dates: start: 20120319, end: 20121122
  5. SODIUM VALPROATE [Concomitant]
     Indication: BIPOLAR I DISORDER
     Route: 048
     Dates: start: 20111015, end: 20121122

REACTIONS (7)
  - Drug reaction with eosinophilia and systemic symptoms [Recovered/Resolved]
  - Rash papular [Recovering/Resolving]
  - Generalised erythema [Recovering/Resolving]
  - Papule [Recovering/Resolving]
  - Hepatic function abnormal [Recovering/Resolving]
  - Rash [Recovering/Resolving]
  - Human herpesvirus 6 infection [Recovering/Resolving]
